FAERS Safety Report 12214966 (Version 3)
Quarter: 2016Q2

REPORT INFORMATION
  Report Type: Spontaneous
  Country: US (occurrence: US)
  Receive Date: 20160328
  Receipt Date: 20160412
  Transmission Date: 20160815
  Serious: Yes (Other)
  Sender: FDA-Public Use
  Company Number: US-LUNDBECK-DKLU2011369

PATIENT
  Age: 86 Year
  Sex: Male

DRUGS (2)
  1. NORTHERA [Suspect]
     Active Substance: DROXIDOPA
     Route: 065
     Dates: start: 20160224
  2. NORTHERA [Suspect]
     Active Substance: DROXIDOPA
     Indication: PARKINSON^S DISEASE
     Route: 065
     Dates: start: 201602, end: 20160224

REACTIONS (11)
  - Abdominal distension [Not Recovered/Not Resolved]
  - Blood pressure decreased [Unknown]
  - Incoherent [Not Recovered/Not Resolved]
  - Cystitis [Unknown]
  - Myocardial infarction [Unknown]
  - Depressed level of consciousness [Not Recovered/Not Resolved]
  - Blood pressure increased [Unknown]
  - Feeding disorder [Unknown]
  - Somnolence [Not Recovered/Not Resolved]
  - Tremor [Recovered/Resolved]
  - Orthostatic hypotension [Unknown]

NARRATIVE: CASE EVENT DATE: 201603
